FAERS Safety Report 4300349-7 (Version None)
Quarter: 2004Q1

REPORT INFORMATION
  Report Type: 
  Country: None (occurrence: None)
  Receive Date: 20040218
  Receipt Date: 20040129
  Transmission Date: 20041129
  Serious: Yes (Other)
  Sender: FDA-Public Use
  Company Number: US_0402100358

PATIENT
  Age: 43 Year
  Sex: Male
  Weight: 93 kg

DRUGS (1)
  1. HUMULIN R [Suspect]

REACTIONS (6)
  - ABDOMINAL DISTENSION [None]
  - BLOOD GLUCOSE INCREASED [None]
  - FALL [None]
  - HAEMORRHAGE [None]
  - HEADACHE [None]
  - SPLENIC INJURY [None]
